FAERS Safety Report 9885730 (Version 1)
Quarter: 2014Q1

REPORT INFORMATION
  Report Type: Report from Study
  Country: BR (occurrence: BR)
  Receive Date: 20140210
  Receipt Date: 20140210
  Transmission Date: 20141002
  Serious: Yes (Other)
  Sender: FDA-Public Use
  Company Number: PHHY2014BR015450

PATIENT
  Sex: Male

DRUGS (3)
  1. EXJADE [Suspect]
     Indication: HEREDITARY HAEMOLYTIC ANAEMIA
     Dosage: 2 DF, DAILY
     Route: 048
  2. FOLIC ACID [Concomitant]
     Dosage: UNK UKN, QW
  3. FOLIC ACID [Concomitant]
     Dosage: 1 DF, DAILY

REACTIONS (7)
  - Fungal infection [Not Recovered/Not Resolved]
  - Rash [Not Recovered/Not Resolved]
  - Drug hypersensitivity [Not Recovered/Not Resolved]
  - Blister [Not Recovered/Not Resolved]
  - Erythema [Not Recovered/Not Resolved]
  - Pruritus [Not Recovered/Not Resolved]
  - Bacterial infection [Not Recovered/Not Resolved]
